FAERS Safety Report 8021919-9 (Version None)
Quarter: 2012Q1

REPORT INFORMATION
  Report Type: 
  Country: None (occurrence: None)
  Receive Date: 20120104
  Receipt Date: 20111227
  Transmission Date: 20120608
  Serious: Yes (Death)
  Sender: FDA-Public Use
  Company Number: BE-SANOFI-AVENTIS-2011SA084131

PATIENT
  Age: 73 Year
  Sex: Female
  Weight: 48.7 kg

DRUGS (5)
  1. INVESTIGATIONAL DRUG [Suspect]
     Dosage: 750 MG IV WEEKLY DAYS 1, 8, 15 OF 21-DAY CYCLE
     Route: 042
     Dates: start: 20111202, end: 20111202
  2. INVESTIGATIONAL DRUG [Suspect]
     Indication: NON-SMALL CELL LUNG CANCER METASTATIC
     Dosage: LOADING DOSE 750MG ON DAYS -7, -6, AND -5 CYCLE 1 ONLY
     Route: 042
     Dates: start: 20110523
  3. DOCETAXEL [Suspect]
     Indication: NON-SMALL CELL LUNG CANCER METASTATIC
     Dosage: DAY 1 OF EACH 21 DAY CYCLE
     Route: 041
     Dates: start: 20110525, end: 20110525
  4. DOCETAXEL [Suspect]
     Dosage: DAY 1 OF EACH 21 DAY CYCLE
     Route: 041
     Dates: start: 20111125, end: 20111125
  5. INVESTIGATIONAL DRUG [Suspect]
     Dosage: 750 MG IV WEEKLY DAYS 1, 8, 15 OF 21-DAY CYCLE
     Route: 042
     Dates: start: 20110501, end: 20110501

REACTIONS (1)
  - CARDIAC ARREST [None]
